FAERS Safety Report 14376934 (Version 2)
Quarter: 2018Q1

REPORT INFORMATION
  Report Type: Spontaneous
  Country: US (occurrence: US)
  Receive Date: 20180111
  Receipt Date: 20180111
  Transmission Date: 20180509
  Serious: No
  Sender: FDA-Public Use
  Company Number: US-DRREDDYS-USA/USA/17/0094004

PATIENT
  Age: 30 Year
  Sex: Female
  Weight: 81.65 kg

DRUGS (2)
  1. NICOTINE. [Suspect]
     Active Substance: NICOTINE
     Indication: SMOKING CESSATION THERAPY
     Route: 062
     Dates: start: 201702
  2. CHANTIX [Concomitant]
     Active Substance: VARENICLINE TARTRATE
     Indication: PRODUCT USED FOR UNKNOWN INDICATION
     Route: 065
     Dates: start: 201705

REACTIONS (5)
  - Application site irritation [Recovered/Resolved]
  - Application site vesicles [Recovered/Resolved]
  - Treatment noncompliance [Unknown]
  - Application site erythema [Recovered/Resolved]
  - Extra dose administered [Unknown]
